FAERS Safety Report 4852571-9 (Version None)
Quarter: 2005Q4

REPORT INFORMATION
  Report Type: 
  Country: None (occurrence: None)
  Receive Date: 20051213
  Receipt Date: 20051129
  Transmission Date: 20060501
  Serious: Yes (Other)
  Sender: FDA-Public Use
  Company Number: PHBS2005GR17758

PATIENT
  Age: 29 Year
  Sex: Male

DRUGS (2)
  1. AREDIA [Suspect]
     Indication: MULTIPLE MYELOMA
     Dosage: 90 MG, EVERY 28 DAYS
     Dates: start: 20020210, end: 20050708
  2. ZOMETA [Suspect]
     Indication: MULTIPLE MYELOMA
     Dosage: 4 MG, EVERY 28 DAYS
     Route: 042
     Dates: start: 20020210, end: 20050708

REACTIONS (1)
  - OSTEONECROSIS [None]
